FAERS Safety Report 13900537 (Version 2)
Quarter: 2017Q3

REPORT INFORMATION
  Report Type: Spontaneous
  Country: JP (occurrence: JP)
  Receive Date: 20170823
  Receipt Date: 20170906
  Transmission Date: 20171127
  Serious: Yes (Other)
  Sender: FDA-Public Use
  Company Number: JP-ELI_LILLY_AND_COMPANY-JP201708007348

PATIENT
  Age: 51 Year
  Sex: Female

DRUGS (3)
  1. DOCETAXEL. [Concomitant]
     Active Substance: DOCETAXEL
     Indication: PHYLLODES TUMOUR
     Dosage: 100 MG/M2, OTHER
     Route: 041
  2. PEGFILGRASTIM [Concomitant]
     Active Substance: PEGFILGRASTIM
     Dosage: 6 MG, OTHER
     Route: 041
  3. GEMZAR [Suspect]
     Active Substance: GEMCITABINE HYDROCHLORIDE
     Indication: PHYLLODES TUMOUR
     Dosage: 675 MG/M2, OTHER
     Route: 041

REACTIONS (5)
  - Platelet count decreased [Unknown]
  - Large intestinal ulcer haemorrhage [Unknown]
  - Diarrhoea [Unknown]
  - Neutrophil count decreased [Unknown]
  - Stomatitis [Unknown]
